FAERS Safety Report 14607291 (Version 1)
Quarter: 2018Q1

REPORT INFORMATION
  Report Type: Spontaneous
  Country: US (occurrence: US)
  Receive Date: 20180307
  Receipt Date: 20180307
  Transmission Date: 20180509
  Serious: Yes (Hospitalization)
  Sender: FDA-Public Use
  Company Number: US-PFIZER INC-2018091854

PATIENT
  Age: 12 Year
  Sex: Male

DRUGS (1)
  1. RAPAMUNE [Suspect]
     Active Substance: SIROLIMUS
     Dosage: 1.5 MG, 1X/DAY
     Route: 048

REACTIONS (5)
  - Product use issue [Unknown]
  - Gastroenteritis norovirus [Unknown]
  - Clostridium difficile colitis [Unknown]
  - Bacterial infection [Recovering/Resolving]
  - Product use in unapproved indication [Unknown]

NARRATIVE: CASE EVENT DATE: 20180122
